FAERS Safety Report 18208210 (Version 1)
Quarter: 2020Q3

REPORT INFORMATION
  Report Type: Spontaneous
  Country: FR (occurrence: FR)
  Receive Date: 20200828
  Receipt Date: 20200828
  Transmission Date: 20201103
  Serious: Yes (Hospitalization, Other)
  Sender: FDA-Public Use
  Company Number: FR-PFIZER INC-2020330678

PATIENT
  Age: 28 Year
  Sex: Male

DRUGS (4)
  1. CEFOTAXIME SODIUM [Suspect]
     Active Substance: CEFOTAXIME SODIUM
     Indication: LUNG DISORDER
     Dosage: UNK
     Dates: start: 20200801, end: 20200805
  2. PARACETAMOL [Suspect]
     Active Substance: ACETAMINOPHEN
     Dosage: UNK
     Dates: start: 20200801, end: 20200805
  3. AZITHROMYCIN ANHYDROUS. [Suspect]
     Active Substance: AZITHROMYCIN ANHYDROUS
     Indication: LUNG DISORDER
     Dosage: UNK
     Dates: start: 20200801, end: 20200805
  4. THIAMAZOLE [Suspect]
     Active Substance: METHIMAZOLE
     Indication: HYPERTHYROIDISM
     Dosage: 40 MG, 1X/DAY
     Dates: start: 20200804, end: 20200805

REACTIONS (1)
  - Agranulocytosis [Not Recovered/Not Resolved]

NARRATIVE: CASE EVENT DATE: 20200805
